FAERS Safety Report 24675855 (Version 1)
Quarter: 2024Q4

REPORT INFORMATION
  Report Type: Spontaneous
  Country: CN (occurrence: CN)
  Receive Date: 20241128
  Receipt Date: 20241128
  Transmission Date: 20250115
  Serious: Yes (Other)
  Sender: MERCK
  Company Number: CN-009507513-2411CHN009361

PATIENT
  Age: 41 Year
  Sex: Male
  Weight: 60 kg

DRUGS (2)
  1. CILASTATIN SODIUM\IMIPENEM [Suspect]
     Active Substance: CILASTATIN SODIUM\IMIPENEM
     Indication: Anti-infective therapy
     Dosage: 1000 MG, TID, INTRAVENOUS PUMP, 80ML/HML/HR
     Dates: start: 20241019, end: 20241028
  2. AMINOPHYLLINE [Suspect]
     Active Substance: AMINOPHYLLINE
     Indication: Asthma
     Dosage: 0.25 G, BID
     Route: 041
     Dates: start: 20241022, end: 20241028

REACTIONS (8)
  - Confusional state [Recovered/Resolved]
  - Somnolence [Recovered/Resolved]
  - Disorganised speech [Recovered/Resolved]
  - Endotracheal intubation [Unknown]
  - Mechanical ventilation [Unknown]
  - Cyanosis [Unknown]
  - Abdominal distension [Unknown]
  - Extravasation blood [Unknown]

NARRATIVE: CASE EVENT DATE: 20241028
